FAERS Safety Report 8776673 (Version 1)
Quarter: 2012Q4

REPORT INFORMATION
  Report Type: 
  Country: EC (occurrence: EC)
  Receive Date: 20120910
  Receipt Date: 20120910
  Transmission Date: 20130627
  Serious: Yes (Other)
  Sender: FDA-Public Use
  Company Number: PHHY2012EC078139

PATIENT
  Sex: Female

DRUGS (1)
  1. DIOVAN HCT [Suspect]
     Indication: HYPERTENSION
     Dosage: 1 DF (160mg valsar/12.5mg hydro), daily
     Route: 048
     Dates: start: 201101

REACTIONS (2)
  - Fall [Unknown]
  - Oedema peripheral [Not Recovered/Not Resolved]
